FAERS Safety Report 23302551 (Version 1)
Quarter: 2023Q4

REPORT INFORMATION
  Report Type: Spontaneous
  Country: US (occurrence: None)
  Receive Date: 20231215
  Receipt Date: 20231215
  Transmission Date: 20240110
  Serious: Yes (Other)
  Sender: FDA-Public Use
  Company Number: 2023A280791

PATIENT
  Age: 56 Year
  Sex: Female

DRUGS (4)
  1. FULVESTRANT [Suspect]
     Active Substance: FULVESTRANT
     Indication: Breast cancer
     Route: 030
  2. EVEROLIMUS [Suspect]
     Active Substance: EVEROLIMUS
  3. FAM-TRASTUZUMAB DERUXTECAN [Concomitant]
  4. PREGABALIN [Concomitant]
     Active Substance: PREGABALIN

REACTIONS (6)
  - Malignant neoplasm progression [Unknown]
  - Metastases to lung [Unknown]
  - Metastases to liver [Recovered/Resolved]
  - Metastases to bone [Recovered/Resolved]
  - Metastases to skin [Unknown]
  - Drug intolerance [Unknown]

NARRATIVE: CASE EVENT DATE: 20170101
